FAERS Safety Report 10703643 (Version 1)
Quarter: 2015Q1

REPORT INFORMATION
  Report Type: Spontaneous
  Country: BE (occurrence: BE)
  Receive Date: 20150112
  Receipt Date: 20150112
  Transmission Date: 20150721
  Serious: Yes (Hospitalization)
  Sender: FDA-Public Use
  Company Number: BE-JNJFOC-20150102642

PATIENT
  Age: 78 Year
  Sex: Female
  Weight: 52 kg

DRUGS (14)
  1. FELDENE [Suspect]
     Active Substance: PIROXICAM
     Indication: FALL
     Route: 030
  2. FELDENE [Suspect]
     Active Substance: PIROXICAM
     Indication: PAIN
     Route: 030
     Dates: start: 20141002, end: 20141008
  3. XARELTO [Suspect]
     Active Substance: RIVAROXABAN
     Indication: THROMBOSIS PROPHYLAXIS
     Route: 048
  4. XARELTO [Suspect]
     Active Substance: RIVAROXABAN
     Indication: ATRIAL FIBRILLATION
     Route: 048
     Dates: start: 20140827, end: 20141009
  5. XARELTO [Suspect]
     Active Substance: RIVAROXABAN
     Indication: ATRIAL FIBRILLATION
     Route: 048
  6. FELDENE [Suspect]
     Active Substance: PIROXICAM
     Indication: FALL
     Route: 030
     Dates: start: 20141002, end: 20141008
  7. FELDENE [Suspect]
     Active Substance: PIROXICAM
     Indication: PAIN
     Route: 030
  8. ISOTEN [Concomitant]
     Indication: HYPERTENSION
     Route: 048
  9. LACTULOSE. [Concomitant]
     Active Substance: LACTULOSE
     Indication: CONSTIPATION
     Route: 048
  10. XARELTO [Suspect]
     Active Substance: RIVAROXABAN
     Indication: THROMBOSIS PROPHYLAXIS
     Route: 048
     Dates: start: 20140827, end: 20141009
  11. PERINDOPRIL [Concomitant]
     Active Substance: PERINDOPRIL
     Indication: HYPERTENSION
     Route: 048
  12. ZOLPIDEM [Concomitant]
     Active Substance: ZOLPIDEM\ZOLPIDEM TARTRATE
     Indication: INSOMNIA
     Route: 048
  13. VOLTAREN [Concomitant]
     Active Substance: DICLOFENAC SODIUM
     Indication: BACK PAIN
     Route: 003
  14. HIRUDOID (HEPARINOID) [Concomitant]
     Indication: HAEMATOMA
     Route: 003

REACTIONS (1)
  - Purpura non-thrombocytopenic [Recovered/Resolved]

NARRATIVE: CASE EVENT DATE: 20141009
